FAERS Safety Report 15650103 (Version 2)
Quarter: 2018Q4

REPORT INFORMATION
  Report Type: Report from Study
  Country: US (occurrence: US)
  Receive Date: 20181123
  Receipt Date: 20181128
  Transmission Date: 20190205
  Serious: No
  Sender: FDA-Public Use
  Company Number: PHEH2018US048818

PATIENT
  Age: 71 Year
  Sex: Female

DRUGS (1)
  1. COSENTYX [Suspect]
     Active Substance: SECUKINUMAB
     Indication: PRODUCT USED FOR UNKNOWN INDICATION
     Dosage: 300 MG, QMO
     Route: 042
     Dates: start: 20160901

REACTIONS (3)
  - Incorrect route of product administration [Unknown]
  - Psoriasis [Unknown]
  - Nail disorder [Unknown]

NARRATIVE: CASE EVENT DATE: 20160901
